FAERS Safety Report 4376135-9 (Version None)
Quarter: 2004Q2

REPORT INFORMATION
  Report Type: 
  Country: None (occurrence: None)
  Receive Date: 20040607
  Receipt Date: 20040527
  Transmission Date: 20050107
  Serious: Yes (Life-Threatening)
  Sender: FDA-Public Use
  Company Number: 04P-087-0252273-00

PATIENT
  Age: 77 Year
  Sex: Female

DRUGS (11)
  1. ISOPTIN [Suspect]
     Indication: AGE INDETERMINATE MYOCARDIAL INFARCTION
     Dosage: 120 MG, 1 IN 1 D, PER ORAL
     Route: 048
  2. FLECAINIDE ACETATE [Suspect]
     Indication: ATRIAL FIBRILLATION
     Dosage: 50 MG INTRAVENOUS
     Route: 042
     Dates: start: 20040106, end: 20040106
  3. INDAPAMIDE [Suspect]
     Indication: AGE INDETERMINATE MYOCARDIAL INFARCTION
     Dosage: 1 MG, 1 IN 1 D, PER ORAL
     Route: 048
  4. AMLODIPINE BESYLATE [Suspect]
     Indication: AGE INDETERMINATE MYOCARDIAL INFARCTION
     Dosage: 2.5 MG, 1 IN 1 D, PER ORAL
     Route: 048
  5. ASPARTATE POTASSIUM [Suspect]
     Indication: AGE INDETERMINATE MYOCARDIAL INFARCTION
     Dosage: 300 MG, 1 IN 1 D, PER ORAL
     Route: 048
  6. TRAPIDIL [Suspect]
     Indication: AGE INDETERMINATE MYOCARDIAL INFARCTION
     Dosage: 20 MG, 1 IN 1 D, PER ORAL
     Route: 048
  7. ALACEPRIL [Suspect]
     Indication: AGE INDETERMINATE MYOCARDIAL INFARCTION
     Dosage: 50 MG, 1 IN 1 D, PER ORAL
     Route: 048
  8. DIMETICONE [Suspect]
     Indication: AGE INDETERMINATE MYOCARDIAL INFARCTION
     Dosage: 120 MG, PER ORAL
     Route: 048
  9. TRIMEBUTINE MALEATE [Suspect]
     Indication: AGE INDETERMINATE MYOCARDIAL INFARCTION
     Dosage: 3 DOSAGE FORMS, 1 IN 1 D, PER ORAL
     Route: 048
  10. ETIZOLAM [Suspect]
     Indication: AGE INDETERMINATE MYOCARDIAL INFARCTION
     Dosage: 0.5 MG, 1 IN 1 D, PER ORAL
     Route: 048
  11. GLYCERYL TRINITRATE [Suspect]
     Indication: AGE INDETERMINATE MYOCARDIAL INFARCTION
     Dosage: AS REQUIRED

REACTIONS (2)
  - ATRIAL FIBRILLATION [None]
  - CARDIAC ARREST [None]
